FAERS Safety Report 9775070 (Version 3)
Quarter: 2014Q1

REPORT INFORMATION
  Report Type: Spontaneous
  Country: AR (occurrence: AR)
  Receive Date: 20131220
  Receipt Date: 20140224
  Transmission Date: 20141002
  Serious: No
  Sender: FDA-Public Use
  Company Number: AR-PFIZER INC-2013316233

PATIENT
  Age: 78 Year
  Sex: Male

DRUGS (4)
  1. SUTENT [Suspect]
     Indication: METASTASES TO LUNG
     Dosage: ONE DAY 2 DOSES OF 25 MG, NEXT DAY 1 DOSE 25 MG
     Dates: start: 20130919
  2. MEMANTINE [Concomitant]
     Dosage: UNK
  3. DONEPEZIL [Concomitant]
     Dosage: UNK
  4. AVODART [Concomitant]
     Dosage: UNK

REACTIONS (8)
  - Haemorrhoids [Recovering/Resolving]
  - Decreased immune responsiveness [Recovered/Resolved]
  - Abdominal discomfort [Recovering/Resolving]
  - Diarrhoea [Recovered/Resolved]
  - Oral discomfort [Recovering/Resolving]
  - Mouth injury [Recovering/Resolving]
  - Tongue injury [Recovering/Resolving]
  - Abdominal distension [Recovering/Resolving]
